FAERS Safety Report 21808122 (Version 3)
Quarter: 2024Q2

REPORT INFORMATION
  Report Type: Spontaneous
  Country: US (occurrence: US)
  Receive Date: 20230103
  Receipt Date: 20240404
  Transmission Date: 20240715
  Serious: Yes (Other)
  Sender: FDA-Public Use
  Company Number: US-SA-SAC20230102000610

PATIENT
  Age: 43 Year
  Sex: Female

DRUGS (6)
  1. AUBAGIO [Suspect]
     Active Substance: TERIFLUNOMIDE
     Indication: Multiple sclerosis
     Dosage: 14 MG, QD
     Route: 048
     Dates: start: 20190820
  2. AUBAGIO [Suspect]
     Active Substance: TERIFLUNOMIDE
     Indication: Rheumatoid arthritis
     Dosage: 7 MG, QD
     Route: 048
  3. MELOXICAM [Concomitant]
     Active Substance: MELOXICAM
     Dosage: UNK
  4. CEFDINIR [Concomitant]
     Active Substance: CEFDINIR
     Dosage: UNK
  5. VIGAMOX [Concomitant]
     Active Substance: MOXIFLOXACIN HYDROCHLORIDE
     Dosage: UNK
  6. TIZANIDINE [Concomitant]
     Active Substance: TIZANIDINE
     Dosage: UNK

REACTIONS (18)
  - Multiple sclerosis [Unknown]
  - Tremor [Unknown]
  - Movement disorder [Unknown]
  - Fall [Unknown]
  - Fine motor skill dysfunction [Unknown]
  - Asthenia [Unknown]
  - Memory impairment [Unknown]
  - Cognitive disorder [Unknown]
  - Pain in extremity [Unknown]
  - Hypoaesthesia [Unknown]
  - Arthritis [Unknown]
  - Loss of personal independence in daily activities [Unknown]
  - Eye movement disorder [Unknown]
  - Dysarthria [Unknown]
  - Memory impairment [Unknown]
  - Disturbance in attention [Unknown]
  - Pleurisy [Unknown]
  - Paraesthesia [Unknown]

NARRATIVE: CASE EVENT DATE: 20221212
